FAERS Safety Report 24179158 (Version 2)
Quarter: 2024Q3

REPORT INFORMATION
  Report Type: Spontaneous
  Country: JP (occurrence: JP)
  Receive Date: 20240806
  Receipt Date: 20240812
  Transmission Date: 20241017
  Serious: Yes (Death)
  Sender: PFIZER
  Company Number: JP-PFIZER INC-PV202400100904

PATIENT
  Age: 74 Year
  Sex: Male

DRUGS (8)
  1. AMIKACIN [Suspect]
     Active Substance: AMIKACIN
     Indication: Osteomyelitis
     Dosage: 700 MG, 1X/DAY; THREE TIMES PER WEEK
  2. AMIKACIN [Suspect]
     Active Substance: AMIKACIN
     Indication: Mycobacterium abscessus infection
  3. CLARITHROMYCIN [Suspect]
     Active Substance: CLARITHROMYCIN
     Indication: Osteomyelitis
     Dosage: 800 MG, 1X/DAY
  4. CLARITHROMYCIN [Suspect]
     Active Substance: CLARITHROMYCIN
     Indication: Mycobacterium abscessus infection
  5. SITAFLOXACIN [Suspect]
     Active Substance: SITAFLOXACIN
     Indication: Osteomyelitis
     Dosage: 200 MG, 1X/DAY
  6. SITAFLOXACIN [Suspect]
     Active Substance: SITAFLOXACIN
     Indication: Mycobacterium abscessus infection
  7. IMIPENEM [Suspect]
     Active Substance: IMIPENEM
     Indication: Osteomyelitis
     Dosage: 1.5 G
  8. IMIPENEM [Suspect]
     Active Substance: IMIPENEM
     Indication: Mycobacterium abscessus infection

REACTIONS (2)
  - Drug ineffective for unapproved indication [Fatal]
  - Off label use [Unknown]
